FAERS Safety Report 6357248-9 (Version None)
Quarter: 2009Q3

REPORT INFORMATION
  Report Type: 
  Country: None (occurrence: None)
  Receive Date: 20090916
  Receipt Date: 20070316
  Transmission Date: 20100115
  Serious: Yes (Other)
  Sender: FDA-Public Use
  Company Number: PHEH2007US16346

PATIENT
  Sex: Male
  Weight: 80 kg

DRUGS (2)
  1. EXJADE [Suspect]
     Indication: MYELODYSPLASTIC SYNDROME
     Dosage: 1500 MG, QD
     Route: 048
     Dates: start: 20061128
  2. EXJADE [Suspect]
     Indication: LYMPHATIC DISORDER

REACTIONS (1)
  - NEOPLASM [None]
